FAERS Safety Report 8135529-6 (Version None)
Quarter: 2012Q1

REPORT INFORMATION
  Report Type: 
  Country: None (occurrence: None)
  Receive Date: 20120210
  Receipt Date: 20120131
  Transmission Date: 20120608
  Serious: Yes (Hospitalization)
  Sender: FDA-Public Use
  Company Number: TCI2011A06292

PATIENT
  Age: 76 Year
  Sex: Female

DRUGS (10)
  1. RISPERIDONE [Suspect]
     Dosage: SEE IMAGE
     Route: 048
     Dates: start: 20110928
  2. RISPERIDONE [Suspect]
     Dosage: SEE IMAGE
     Route: 048
     Dates: end: 20111116
  3. RISPERIDONE [Suspect]
     Dosage: SEE IMAGE
     Route: 048
     Dates: start: 20100811, end: 20110920
  4. RISPERIDONE [Suspect]
     Dosage: SEE IMAGE
     Route: 048
     Dates: start: 20110921, end: 20110927
  5. ROZEREM [Suspect]
     Indication: INSOMNIA
     Dosage: 8 MG (8 MG, 1 IN 1 D)
     Route: 048
     Dates: start: 20110921, end: 20111116
  6. SLOW-K [Suspect]
     Dosage: 1200 MG (1200 MG, 1 IN 1 D)
     Route: 048
     Dates: start: 20110720, end: 20111116
  7. YOKUKAN-SAN OSUGI (HERBAL EXTRACT NOS) [Suspect]
     Dosage: 7.5 GM (2.5 GM, 3 IN 1 D)
     Route: 048
     Dates: start: 20080206, end: 20111116
  8. CHLORPROMAZINE HCL [Suspect]
     Dosage: 12.5 MG (12.5 MG, 1 IN 1 D)
     Route: 048
     Dates: start: 20110928, end: 20111116
  9. AMLODIPINE [Suspect]
     Dosage: 2.5 MG(2.5 MG, 1 IN 1 D)
     Route: 048
     Dates: start: 20101120, end: 20111116
  10. EPINASTINE HYDROCHLORIDE [Suspect]
     Dosage: 20 MG (20 MG, 1IN 1 D)
     Route: 048
     Dates: start: 20081230, end: 20111116

REACTIONS (5)
  - DRUG INEFFECTIVE [None]
  - HEPATIC NECROSIS [None]
  - LIVER DISORDER [None]
  - HEPATITIS [None]
  - CHOLESTASIS [None]
